FAERS Safety Report 20316842 (Version 3)
Quarter: 2022Q1

REPORT INFORMATION
  Report Type: Spontaneous
  Country: US (occurrence: US)
  Receive Date: 20220110
  Receipt Date: 20220117
  Transmission Date: 20220423
  Serious: No
  Sender: FDA-Public Use
  Company Number: US-NOVARTISTESTPH-NVSC2022US003250

PATIENT
  Sex: Female

DRUGS (1)
  1. TRIAMCINOLONE ACETONIDE [Suspect]
     Active Substance: TRIAMCINOLONE ACETONIDE
     Indication: Psoriatic arthropathy
     Dosage: UNK
     Route: 061

REACTIONS (4)
  - Skin exfoliation [Unknown]
  - Plantar fasciitis [Unknown]
  - Rash [Unknown]
  - Arthritis [Unknown]
